FAERS Safety Report 13508266 (Version 1)
Quarter: 2017Q2

REPORT INFORMATION
  Report Type: Report from Study
  Country: NL (occurrence: NL)
  Receive Date: 20170503
  Receipt Date: 20170503
  Transmission Date: 20170830
  Serious: Yes (Death)
  Sender: FDA-Public Use
  Company Number: PHHY2017NL064583

PATIENT
  Age: 65 Year
  Sex: Male

DRUGS (3)
  1. SANDOSTATINE LAR [Suspect]
     Active Substance: OCTREOTIDE ACETATE
     Dosage: UNK
     Route: 030
     Dates: start: 20140211
  2. SANDOSTATINE LAR [Suspect]
     Active Substance: OCTREOTIDE ACETATE
     Indication: NEUROENDOCRINE TUMOUR
     Dosage: 30 MG/2 ML, QMO (ONCE EVERY 4 WEEKS)
     Route: 030
  3. SANDOSTATINE LAR [Suspect]
     Active Substance: OCTREOTIDE ACETATE
     Route: 030
     Dates: start: 20170328

REACTIONS (1)
  - Death [Fatal]

NARRATIVE: CASE EVENT DATE: 20170423
